FAERS Safety Report 7932645-6 (Version None)
Quarter: 2011Q4

REPORT INFORMATION
  Report Type: 
  Country: None (occurrence: None)
  Receive Date: 20111122
  Receipt Date: 20111116
  Transmission Date: 20120403
  Serious: Yes (Hospitalization)
  Sender: FDA-Public Use
  Company Number: FR-BRISTOL-MYERS SQUIBB COMPANY-16219339

PATIENT
  Age: 87 Year
  Sex: Female

DRUGS (9)
  1. ALLOPURINOL [Concomitant]
     Dosage: 1 D.F:10 UNITS NOT SPECIFIED
  2. INSULATARD NPH HUMAN [Concomitant]
  3. LEVOTHYROXINE SODIUM [Concomitant]
     Dosage: 1 D.F:25 UNITS NOT SPECIFIED
  4. EUPRESSYL [Suspect]
     Dosage: 1 D.F:1 CAPSULE
     Route: 048
     Dates: end: 20110423
  5. LYRICA [Suspect]
     Dosage: 1 CAPSULE
     Route: 048
     Dates: end: 20110423
  6. AMLODIPINE BESYLATE [Concomitant]
     Dosage: 1 D.F:10 UNITS NOT SPECIFIED
  7. FERROUS SULFATE TAB [Concomitant]
  8. COUMADIN [Suspect]
     Dosage: 1 D.F:1 FILM-COATED TABLET
     Route: 048
  9. ACETAMINOPHEN [Concomitant]

REACTIONS (4)
  - FALL [None]
  - HEAD INJURY [None]
  - HYPOTENSION [None]
  - JOINT INJURY [None]
